FAERS Safety Report 26011165 (Version 1)
Quarter: 2025Q4

REPORT INFORMATION
  Report Type: Spontaneous
  Country: EU (occurrence: EU)
  Receive Date: 20251107
  Receipt Date: 20251107
  Transmission Date: 20260117
  Serious: Yes (Hospitalization)
  Sender: BAYER HEALTHCARE PHARMACEUTICALS INC.
  Company Number: EU-BAYER-2025A144882

PATIENT
  Sex: Male

DRUGS (3)
  1. KERENDIA [Suspect]
     Active Substance: FINERENONE
     Indication: Glomerular filtration rate decreased
     Dosage: 10 MG
     Dates: start: 202501
  2. SPIRONOLACTONE [Concomitant]
     Active Substance: SPIRONOLACTONE
  3. EPLERENONE [Concomitant]
     Active Substance: EPLERENONE

REACTIONS (3)
  - Renal failure [Recovered/Resolved]
  - Off label use [None]
  - Gynaecomastia [None]

NARRATIVE: CASE EVENT DATE: 20250401
